APPROVED DRUG PRODUCT: MINOCYCLINE HYDROCHLORIDE
Active Ingredient: MINOCYCLINE HYDROCHLORIDE
Strength: EQ 80MG BASE
Dosage Form/Route: TABLET, EXTENDED RELEASE;ORAL
Application: A202261 | Product #006 | TE Code: AB
Applicant: AUROBINDO PHARMA LTD
Approved: Jun 13, 2016 | RLD: No | RS: No | Type: RX